FAERS Safety Report 11318527 (Version 1)
Quarter: 2015Q3

REPORT INFORMATION
  Report Type: Spontaneous
  Country: US (occurrence: US)
  Receive Date: 20150729
  Receipt Date: 20150729
  Transmission Date: 20151125
  Serious: No
  Sender: FDA-Public Use
  Company Number: US-ASTRAZENECA-2015SE70176

PATIENT
  Age: 50 Year
  Sex: Female
  Weight: 77.1 kg

DRUGS (2)
  1. SYMBICORT [Suspect]
     Active Substance: BUDESONIDE\FORMOTEROL FUMARATE DIHYDRATE
     Indication: TOBACCO USER
     Dosage: 80/4.5MCG, 2 PUFFS TWICE A DAY
     Route: 055
     Dates: start: 2009
  2. CYMBALTA [Concomitant]
     Active Substance: DULOXETINE HYDROCHLORIDE
     Indication: ANXIETY
     Route: 048
     Dates: start: 2003

REACTIONS (7)
  - Off label use [Unknown]
  - Dysphonia [Unknown]
  - Device issue [Unknown]
  - Product use issue [Unknown]
  - Fatigue [Unknown]
  - Dyspnoea [Unknown]
  - Physical product label issue [Unknown]

NARRATIVE: CASE EVENT DATE: 2009
